FAERS Safety Report 4369519-6 (Version None)
Quarter: 2004Q2

REPORT INFORMATION
  Report Type: 
  Country: None (occurrence: None)
  Receive Date: 20040527
  Receipt Date: 20040524
  Transmission Date: 20050107
  Serious: Yes (Other)
  Sender: FDA-Public Use
  Company Number: C-04-0029

PATIENT
  Age: 15 Year
  Sex: Male
  Weight: 72.5755 kg

DRUGS (1)
  1. PROMETHAZINE HCL AND DEXTROMETHORPHAN HBR [Suspect]
     Indication: NASOPHARYNGITIS
     Dates: start: 20040329

REACTIONS (1)
  - THINKING ABNORMAL [None]
